FAERS Safety Report 13398913 (Version 1)
Quarter: 2017Q2

REPORT INFORMATION
  Report Type: Spontaneous
  Country: US (occurrence: US)
  Receive Date: 20170404
  Receipt Date: 20170404
  Transmission Date: 20170830
  Serious: No
  Sender: FDA-Public Use
  Company Number: US-AMGEN-USASP2017047415

PATIENT
  Age: 71 Year
  Sex: Female

DRUGS (2)
  1. METHOTREXATE. [Concomitant]
     Active Substance: METHOTREXATE
     Dosage: UNK
     Dates: end: 201703
  2. ENBREL [Suspect]
     Active Substance: ETANERCEPT
     Indication: RHEUMATOID ARTHRITIS
     Dosage: 50 MG, QWK
     Route: 065
     Dates: start: 20170210

REACTIONS (13)
  - Fatigue [Unknown]
  - Nausea [Unknown]
  - Feeling abnormal [Unknown]
  - Injection site pruritus [Unknown]
  - Headache [Unknown]
  - Injection site pain [Unknown]
  - Malaise [Unknown]
  - Pain in extremity [Not Recovered/Not Resolved]
  - Injection site mass [Unknown]
  - Peripheral swelling [Recovered/Resolved]
  - Injection site bruising [Unknown]
  - Musculoskeletal pain [Not Recovered/Not Resolved]
  - Injection site erythema [Unknown]

NARRATIVE: CASE EVENT DATE: 2017
